FAERS Safety Report 9236109 (Version 3)
Quarter: 2013Q2

REPORT INFORMATION
  Report Type: Spontaneous
  Country: DE (occurrence: DE)
  Receive Date: 20130417
  Receipt Date: 20130609
  Transmission Date: 20140414
  Serious: Yes (Other)
  Sender: FDA-Public Use
  Company Number: PHHY2013DE036212

PATIENT
  Sex: Female

DRUGS (1)
  1. KARIL [Suspect]
     Indication: OSTEOPOROSIS
     Route: 045
     Dates: start: 1993, end: 2012

REACTIONS (5)
  - Lumbar spinal stenosis [Not Recovered/Not Resolved]
  - Gait disturbance [Not Recovered/Not Resolved]
  - Bone pain [Not Recovered/Not Resolved]
  - Arthralgia [Not Recovered/Not Resolved]
  - Myalgia [Not Recovered/Not Resolved]
